FAERS Safety Report 10744633 (Version 1)
Quarter: 2015Q1

REPORT INFORMATION
  Report Type: Spontaneous
  Country: US (occurrence: None)
  Receive Date: 20150120
  Receipt Date: 20150120
  Transmission Date: 20150721
  Serious: No
  Sender: FDA-Public Use
  Company Number: AEGR000829

PATIENT
  Age: 73 Year
  Sex: Female
  Weight: 121.1 kg

DRUGS (16)
  1. CIPROFLOXACIN (CIPROFLOXACIN HYDROCHLORIDE) 500 MILLIGRAM, TABLETS) [Suspect]
     Active Substance: CIPROFLOXACIN\CIPROFLOXACIN HYDROCHLORIDE
     Indication: PRODUCT USED FOR UNKNOWN INDICATION
     Dates: start: 201410, end: 201410
  2. LIPITOR [Concomitant]
     Active Substance: ATORVASTATIN CALCIUM
  3. FISH OIL [Concomitant]
     Active Substance: FISH OIL
  4. CHONDROITIN SULFATE (BOVINE)\GLUCOSAMINE SULFATE [Concomitant]
     Active Substance: CHONDROITIN SULFATE (BOVINE)\GLUCOSAMINE SULFATE
  5. CINNAMON. [Concomitant]
     Active Substance: CINNAMON
  6. NIFEDIPINE. [Concomitant]
     Active Substance: NIFEDIPINE
  7. ASPIRIN. [Concomitant]
     Active Substance: ASPIRIN
  8. VITAMIN D3 [Concomitant]
     Active Substance: CHOLECALCIFEROL
  9. LABETALOL (LABETALOL HYDROCHLORIDE) [Concomitant]
  10. OMEPRAZOLE. [Concomitant]
     Active Substance: OMEPRAZOLE
  11. LASIX [Concomitant]
     Active Substance: FUROSEMIDE
  12. RANEXA (RANOLAZINE) [Concomitant]
  13. PLAVIX (CLOPIDOGREL BISULFATE) [Concomitant]
  14. JUXTAPID [Suspect]
     Active Substance: LOMITAPIDE MESYLATE
     Indication: TYPE IIA HYPERLIPIDAEMIA
     Route: 048
     Dates: start: 20140930, end: 20141021
  15. EZETIMIBE. [Concomitant]
     Active Substance: EZETIMIBE
  16. LOSARTAN [Concomitant]
     Active Substance: LOSARTAN

REACTIONS (8)
  - Weight decreased [None]
  - Back pain [None]
  - Proctalgia [None]
  - Urinary tract infection [None]
  - Diarrhoea [None]
  - Flank pain [None]
  - Muscle spasms [None]
  - Constipation [None]

NARRATIVE: CASE EVENT DATE: 201410
